FAERS Safety Report 4600462-0 (Version None)
Quarter: 2005Q1

REPORT INFORMATION
  Report Type: 
  Country: None (occurrence: None)
  Receive Date: 20050304
  Receipt Date: 20050219
  Transmission Date: 20050727
  Serious: Yes (Other)
  Sender: FDA-Public Use
  Company Number: 2005033847

PATIENT
  Age: 23 Year
  Sex: Male
  Weight: 86.1834 kg

DRUGS (1)
  1. BENADRYL [Suspect]
     Indication: MULTIPLE ALLERGIES
     Dosage: ONCE, ORAL
     Route: 048
     Dates: start: 20040801, end: 20040801

REACTIONS (3)
  - LOSS OF CONSCIOUSNESS [None]
  - MEDICATION ERROR [None]
  - SOMNOLENCE [None]
